APPROVED DRUG PRODUCT: NITROFURANTOIN
Active Ingredient: NITROFURANTOIN
Strength: 25MG/5ML
Dosage Form/Route: SUSPENSION;ORAL
Application: A216385 | Product #001 | TE Code: AB
Applicant: NOVITIUM PHARMA LLC
Approved: Apr 14, 2023 | RLD: No | RS: No | Type: RX